FAERS Safety Report 8290708-2 (Version None)
Quarter: 2012Q2

REPORT INFORMATION
  Report Type: 
  Country: None (occurrence: None)
  Receive Date: 20120417
  Receipt Date: 20110408
  Transmission Date: 20120825
  Serious: No
  Sender: FDA-Public Use
  Company Number: US-ASTRAZENECA-2011SE20015

PATIENT
  Age: 50 Year
  Sex: Male
  Weight: 97.5 kg

DRUGS (1)
  1. NEXIUM [Suspect]
     Indication: GASTROOESOPHAGEAL REFLUX DISEASE
     Route: 048

REACTIONS (4)
  - THROAT TIGHTNESS [None]
  - OESOPHAGEAL STENOSIS [None]
  - DRUG INEFFECTIVE [None]
  - DRUG DOSE OMISSION [None]
